FAERS Safety Report 4485032-X (Version None)
Quarter: 2004Q3

REPORT INFORMATION
  Report Type: 
  Country: None (occurrence: None)
  Receive Date: 20040921
  Receipt Date: 20030815
  Transmission Date: 20050211
  Serious: Yes (Death, Life-Threatening, Hospitalization, Other)
  Sender: FDA-Public Use
  Company Number: 163-20785-03060055

PATIENT
  Age: 48 Year
  Sex: Male
  Weight: 92.5 kg

DRUGS (14)
  1. THALOMID [Suspect]
     Indication: GLIOMA
     Dosage: 200 MG DAILY, ORAL
     Route: 048
     Dates: start: 20010925, end: 20011120
  2. THALOMID [Suspect]
     Indication: GLIOMA
     Dosage: 200 MG DAILY, ORAL
     Route: 048
     Dates: start: 20030505, end: 20030715
  3. CELEBREX [Suspect]
     Indication: GLIOMA
     Dosage: 200 MG, BID,ORAL
     Route: 048
     Dates: start: 20030501, end: 20030715
  4. CYCLOPHOSPHAMIDE [Suspect]
     Indication: GLIOMA
     Dosage: 100 MG, QD, ORAL
     Route: 048
     Dates: start: 20030501, end: 20030612
  5. DECADRON [Suspect]
     Indication: GLIOMA
     Dosage: QD, ORAL
     Route: 048
  6. ETOPOSIDE [Suspect]
     Indication: GLIOMA
     Dosage: 50 MG, QD, ORAL
     Route: 048
     Dates: end: 20030713
  7. KEPPRA [Concomitant]
  8. DIGOXIN [Concomitant]
  9. PROTONIX [Concomitant]
  10. LIPITOR [Concomitant]
  11. GLUCOPHAGE [Concomitant]
  12. GLYBURIDE [Concomitant]
  13. CALCIUM (CALCIUM) [Concomitant]
  14. COUMADIN [Concomitant]

REACTIONS (20)
  - ALANINE AMINOTRANSFERASE INCREASED [None]
  - ASTHENIA [None]
  - CONVULSION [None]
  - DEATH [None]
  - DEEP VEIN THROMBOSIS [None]
  - DEHYDRATION [None]
  - DISEASE PROGRESSION [None]
  - FALL [None]
  - HAEMATOCRIT DECREASED [None]
  - HAEMOGLOBIN DECREASED [None]
  - HEART RATE INCREASED [None]
  - HEPATOTOXICITY [None]
  - HYPERGLYCAEMIA [None]
  - HYPONATRAEMIA [None]
  - HYPOTENSION [None]
  - LEUKOPENIA [None]
  - OEDEMA PERIPHERAL [None]
  - PULMONARY EMBOLISM [None]
  - RED BLOOD CELL COUNT DECREASED [None]
  - SYNCOPE [None]
